FAERS Safety Report 10083574 (Version 1)
Quarter: 2014Q2

REPORT INFORMATION
  Report Type: Spontaneous
  Country: US (occurrence: None)
  Receive Date: 20140416
  Receipt Date: 20140416
  Transmission Date: 20141212
  Serious: Yes (Hospitalization)
  Sender: FDA-Public Use
  Company Number: None

PATIENT
  Age: 43 Year
  Sex: Female
  Weight: 61.5 kg

DRUGS (1)
  1. ALFA 2 INTERFERON 2B (INTRON-A) [Suspect]
     Dosage: 455 MILLION IU
     Dates: end: 20131007

REACTIONS (8)
  - Insomnia [None]
  - Oropharyngeal pain [None]
  - Ear pain [None]
  - Leukopenia [None]
  - Lymphocyte count decreased [None]
  - Anaemia [None]
  - Thrombocytopenia [None]
  - Granulocytopenia [None]
